FAERS Safety Report 13433578 (Version 2)
Quarter: 2017Q3

REPORT INFORMATION
  Report Type: Spontaneous
  Country: JP (occurrence: JP)
  Receive Date: 20170412
  Receipt Date: 20170824
  Transmission Date: 20171127
  Serious: Yes (Hospitalization)
  Sender: FDA-Public Use
  Company Number: JP-JNJFOC-20170412778

PATIENT
  Age: 75 Year
  Sex: Male
  Weight: 52 kg

DRUGS (9)
  1. CANAGLU [Suspect]
     Active Substance: CANAGLIFLOZIN
     Indication: TYPE 2 DIABETES MELLITUS
     Route: 048
     Dates: start: 20160906, end: 20161101
  2. ONGLYZA [Concomitant]
     Active Substance: SAXAGLIPTIN HYDROCHLORIDE
     Indication: TYPE 2 DIABETES MELLITUS
     Route: 048
     Dates: start: 20160816
  3. METGLUCO [Suspect]
     Active Substance: METFORMIN HYDROCHLORIDE
     Indication: TYPE 2 DIABETES MELLITUS
     Route: 048
     Dates: start: 20160817, end: 201611
  4. METGLUCO [Suspect]
     Active Substance: METFORMIN HYDROCHLORIDE
     Indication: TYPE 2 DIABETES MELLITUS
     Route: 048
  5. CRESTOR [Concomitant]
     Active Substance: ROSUVASTATIN CALCIUM
     Route: 048
     Dates: start: 20160802
  6. PARIET [Concomitant]
     Active Substance: RABEPRAZOLE SODIUM
     Route: 048
     Dates: start: 20160802
  7. OLMETEC [Concomitant]
     Active Substance: OLMESARTAN MEDOXOMIL
     Route: 048
     Dates: start: 20160802
  8. NORVASC [Concomitant]
     Active Substance: AMLODIPINE BESYLATE
     Route: 048
     Dates: start: 20160802
  9. VOGLIBOSE [Concomitant]
     Active Substance: VOGLIBOSE
     Indication: TYPE 2 DIABETES MELLITUS
     Route: 048
     Dates: start: 20161105

REACTIONS (1)
  - Lactic acidosis [Recovered/Resolved]

NARRATIVE: CASE EVENT DATE: 20161101
